FAERS Safety Report 9245297 (Version 1)
Quarter: 2013Q2

REPORT INFORMATION
  Report Type: Spontaneous
  Country: SE (occurrence: SE)
  Receive Date: 20130422
  Receipt Date: 20130422
  Transmission Date: 20140414
  Serious: Yes (Other)
  Sender: FDA-Public Use
  Company Number: SE-VERTEX PHARMACEUTICALS INC.-2013-005210

PATIENT
  Age: 47 Year
  Sex: Female

DRUGS (3)
  1. INCIVO [Suspect]
     Indication: HEPATITIS
     Dosage: 2.2 G, QD
     Route: 048
     Dates: start: 20120323, end: 20120422
  2. PEGASYS [Concomitant]
     Indication: HEPATITIS
     Dosage: DOSAGE FORM: SOLUTION FOR INJECTION
     Route: 065
  3. COPEGUS [Concomitant]
     Indication: HEPATITIS
     Dosage: DOSAGE FORM: TABLET
     Route: 065

REACTIONS (1)
  - Erythema multiforme [Not Recovered/Not Resolved]
